FAERS Safety Report 19960911 (Version 1)
Quarter: 2021Q4

REPORT INFORMATION
  Report Type: Spontaneous
  Country: SA (occurrence: SA)
  Receive Date: 20211016
  Receipt Date: 20211016
  Transmission Date: 20220303
  Serious: Yes (Other)
  Sender: FDA-Public Use
  Company Number: SA-SA-2021SA340547

PATIENT
  Age: 58 Year
  Sex: Female

DRUGS (2)
  1. NICOTINE [Suspect]
     Active Substance: NICOTINE
     Dosage: UNK
  2. OXITRIPTAN [Suspect]
     Active Substance: OXITRIPTAN
     Indication: Migraine
     Dosage: UNK

REACTIONS (3)
  - Reversible cerebral vasoconstriction syndrome [Unknown]
  - Overdose [Unknown]
  - Depressed level of consciousness [Unknown]
